FAERS Safety Report 5371471-1 (Version None)
Quarter: 2007Q2

REPORT INFORMATION
  Report Type: 
  Country: None (occurrence: None)
  Receive Date: 20070615
  Receipt Date: 20070302
  Transmission Date: 20071010
  Serious: Yes (Other)
  Sender: FDA-Public Use
  Company Number: 200711496US

PATIENT
  Age: 66 Year
  Sex: Male

DRUGS (10)
  1. LANTUS [Suspect]
     Indication: DIABETES MELLITUS NON-INSULIN-DEPENDENT
     Dosage: 30 U QPM
     Dates: start: 20070228, end: 20070302
  2. LANTUS [Suspect]
     Indication: DIABETES MELLITUS NON-INSULIN-DEPENDENT
     Dosage: 40 U
     Dates: start: 20070303, end: 20070303
  3. LANTUS [Suspect]
     Indication: DIABETES MELLITUS NON-INSULIN-DEPENDENT
     Dosage: 45 U QPM
     Dates: start: 20070304
  4. OPTICLIK [Suspect]
     Indication: DIABETES MELLITUS NON-INSULIN-DEPENDENT
     Dates: start: 20070228
  5. PANCREATIN TRIPLE STRENGTH CAP [Concomitant]
  6. CIMETIDINE HCL [Concomitant]
  7. LISINOPRIL [Concomitant]
  8. NIACIN [Concomitant]
  9. MECLIZINE [Concomitant]
  10. HUMALOG [Concomitant]

REACTIONS (3)
  - DRUG INEFFECTIVE [None]
  - HYPERGLYCAEMIA [None]
  - LARYNGITIS [None]
